FAERS Safety Report 6143035-3 (Version None)
Quarter: 2009Q2

REPORT INFORMATION
  Report Type: 
  Country: None (occurrence: None)
  Receive Date: 20090401
  Receipt Date: 20090401
  Transmission Date: 20091009
  Serious: Yes (Hospitalization)
  Sender: FDA-Public Use
  Company Number: None

PATIENT
  Age: 70 Year
  Sex: Male

DRUGS (3)
  1. PREDNISONE [Suspect]
  2. METHOTREXATE [Suspect]
  3. REMICADE [Suspect]

REACTIONS (5)
  - ESCHERICHIA INFECTION [None]
  - HEPATIC ENZYME INCREASED [None]
  - HYPOTENSION [None]
  - IMMUNOSUPPRESSION [None]
  - SEPSIS [None]
